FAERS Safety Report 22247617 (Version 1)
Quarter: 2023Q2

REPORT INFORMATION
  Report Type: Spontaneous
  Country: US (occurrence: US)
  Receive Date: 20230425
  Receipt Date: 20230425
  Transmission Date: 20230721
  Serious: No
  Sender: FDA-Public Use
  Company Number: US-TOPROL-2022000239

PATIENT
  Age: 79 Year
  Sex: Female

DRUGS (4)
  1. METOPROLOL SUCCINATE [Suspect]
     Active Substance: METOPROLOL SUCCINATE
     Indication: Hypertension
     Dosage: 1 TABLET IN THE AM AND ONE-HALF IN THE PM.
     Route: 065
     Dates: start: 2022, end: 202204
  2. METOPROLOL SUCCINATE [Suspect]
     Active Substance: METOPROLOL SUCCINATE
     Dosage: 1 TABLET IN THE AM AND ONE-HALF IN THE PM.
     Route: 065
     Dates: start: 2022, end: 202204
  3. TOPROL XL [Suspect]
     Active Substance: METOPROLOL SUCCINATE
     Indication: Hypertension
     Route: 065
  4. TOPROL XL [Suspect]
     Active Substance: METOPROLOL SUCCINATE
     Route: 065

REACTIONS (3)
  - Inappropriate schedule of product administration [Unknown]
  - Palpitations [Recovered/Resolved]
  - Product dose omission issue [Recovered/Resolved]
